FAERS Safety Report 8089660-4 (Version None)
Quarter: 2012Q1

REPORT INFORMATION
  Report Type: 
  Country: None (occurrence: None)
  Receive Date: 20120128
  Receipt Date: 20110627
  Transmission Date: 20120608
  Serious: No
  Sender: FDA-Public Use
  Company Number: US-ABBOTT-11P-163-0729809-00

PATIENT
  Sex: Female
  Weight: 59.02 kg

DRUGS (4)
  1. CLONAZEPAM [Concomitant]
     Indication: ANXIETY
  2. ZOLOFT [Concomitant]
     Indication: ANXIETY
  3. HUMIRA [Suspect]
     Indication: CROHN'S DISEASE
     Route: 058
     Dates: start: 20100201
  4. HUMIRA [Suspect]
     Route: 058
     Dates: start: 20100101

REACTIONS (6)
  - DEVICE MALFUNCTION [None]
  - WRONG TECHNIQUE IN DRUG USAGE PROCESS [None]
  - INCORRECT DOSE ADMINISTERED [None]
  - INJECTION SITE HAEMORRHAGE [None]
  - INJECTION SITE ANAESTHESIA [None]
  - DRUG INEFFECTIVE [None]
